FAERS Safety Report 11672649 (Version 1)
Quarter: 2015Q4

REPORT INFORMATION
  Report Type: Other
  Country: AU (occurrence: AU)
  Receive Date: 20151028
  Receipt Date: 20151028
  Transmission Date: 20160304
  Serious: Yes (Other)
  Sender: FDA-Public Use
  Company Number: AU-LUPIN PHARMACEUTICALS INC.-2015-03326

PATIENT
  Sex: Male
  Weight: 3.61 kg

DRUGS (4)
  1. THYROXINE [Concomitant]
     Active Substance: LEVOTHYROXINE
     Indication: HYPOTHYROIDISM
     Dosage: 100 MICROG
     Route: 064
  2. LAMOTRIGINE. [Suspect]
     Active Substance: LAMOTRIGINE
     Indication: BIPOLAR DISORDER
     Dosage: 400 MG
     Route: 064
  3. LAMOTRIGINE. [Suspect]
     Active Substance: LAMOTRIGINE
     Dosage: 500 MG
     Route: 064
  4. QUETIAPINE [Suspect]
     Active Substance: QUETIAPINE
     Indication: BIPOLAR DISORDER
     Dosage: 600 MG
     Route: 064

REACTIONS (6)
  - Drug withdrawal syndrome [Unknown]
  - Hypoxic-ischaemic encephalopathy [Recovering/Resolving]
  - Feeding disorder of infancy or early childhood [Recovering/Resolving]
  - Neonatal behavioural syndrome [Recovering/Resolving]
  - Foetal exposure during pregnancy [Unknown]
  - Irritability [Recovering/Resolving]
